FAERS Safety Report 17910401 (Version 1)
Quarter: 2020Q2

REPORT INFORMATION
  Report Type: Spontaneous
  Country: US (occurrence: US)
  Receive Date: 20200617
  Receipt Date: 20200617
  Transmission Date: 20200714
  Serious: Yes (Other)
  Sender: FDA-Public Use
  Company Number: US-INTERNATIONAL MEDICATION SYSTEMS, LIMITED-2086051

PATIENT

DRUGS (1)
  1. LIDOCAINE HYDROCHLORIDE. [Suspect]
     Active Substance: LIDOCAINE HYDROCHLORIDE
     Indication: ENDOTRACHEAL INTUBATION
     Route: 061
     Dates: start: 20200601, end: 20200601

REACTIONS (2)
  - Foreign body [Recovered/Resolved]
  - Removal of foreign body from throat [Recovered/Resolved]

NARRATIVE: CASE EVENT DATE: 20200601
